FAERS Safety Report 16286607 (Version 1)
Quarter: 2019Q2

REPORT INFORMATION
  Report Type: Spontaneous
  Country: US (occurrence: US)
  Receive Date: 20190507
  Receipt Date: 20190507
  Transmission Date: 20190711
  Serious: Yes (Hospitalization)
  Sender: FDA-Public Use
  Company Number: None

PATIENT
  Age: 54 Year
  Sex: Male
  Weight: 73.6 kg

DRUGS (2)
  1. MAVYRET [Suspect]
     Active Substance: GLECAPREVIR\PIBRENTASVIR
     Indication: HEPATITIS C
     Dosage: DOSE AMOUNT: 3 UNK
     Route: 048
     Dates: start: 20190418, end: 20190429
  2. LISINOPRIL. [Concomitant]
     Active Substance: LISINOPRIL
     Dates: start: 20190101

REACTIONS (6)
  - Nausea [None]
  - Abdominal pain [None]
  - Vomiting [None]
  - Acute kidney injury [None]
  - Hypovolaemia [None]
  - Hyponatraemia [None]

NARRATIVE: CASE EVENT DATE: 20190429
